FAERS Safety Report 17765443 (Version 2)
Quarter: 2020Q3

REPORT INFORMATION
  Report Type: Spontaneous
  Country: US (occurrence: US)
  Receive Date: 20200511
  Receipt Date: 20200904
  Transmission Date: 20201102
  Serious: Yes (Hospitalization, Other)
  Sender: FDA-Public Use
  Company Number: NVSC2020US123061

PATIENT
  Age: 83 Year
  Sex: Female

DRUGS (3)
  1. OFEV [Suspect]
     Active Substance: NINTEDANIB
     Dosage: 200 MG (100 MG, BID)
     Route: 048
     Dates: start: 20190522
  2. ZOFRAN [Suspect]
     Active Substance: ONDANSETRON HYDROCHLORIDE
     Indication: NAUSEA
     Dosage: UNK
     Route: 065
  3. OFEV [Suspect]
     Active Substance: NINTEDANIB
     Indication: IDIOPATHIC PULMONARY FIBROSIS
     Dosage: 300 MG (150 MG, BID) (BATCH NO: 904269, 900493A)
     Route: 048
     Dates: start: 20190515

REACTIONS (18)
  - Fluid retention [Unknown]
  - Constipation [Unknown]
  - Cardiomegaly [Unknown]
  - Flushing [Unknown]
  - Oedema [Unknown]
  - Upper-airway cough syndrome [Unknown]
  - Dyspnoea [Unknown]
  - Pulmonary hypertension [Unknown]
  - Blood pressure decreased [Unknown]
  - Pneumonia [Unknown]
  - Respiratory failure [Unknown]
  - Diarrhoea [Unknown]
  - Cardiac failure [Unknown]
  - Vomiting [Not Recovered/Not Resolved]
  - Somnolence [Unknown]
  - Cough [Unknown]
  - Nasal congestion [Unknown]
  - Nausea [Recovering/Resolving]

NARRATIVE: CASE EVENT DATE: 201905
